FAERS Safety Report 8677594 (Version 3)
Quarter: 2012Q4

REPORT INFORMATION
  Report Type: 
  Country: US (occurrence: US)
  Receive Date: 20120723
  Receipt Date: 20121029
  Transmission Date: 20130627
  Serious: No
  Sender: FDA-Public Use
  Company Number: US-PFIZER INC-2012172317

PATIENT
  Age: 62 Year
  Sex: Male
  Weight: 90.7 kg

DRUGS (3)
  1. XANAX XR [Suspect]
     Dosage: 0.5 mg, UNK
     Dates: start: 2004
  2. ALPRAZOLAM [Suspect]
     Dosage: UNK
     Dates: start: 2012
  3. ASPIRIN [Concomitant]
     Indication: HEART ATTACK
     Dosage: UNK

REACTIONS (6)
  - Drug ineffective [Unknown]
  - Drug dispensing error [Unknown]
  - Abdominal discomfort [Unknown]
  - Malaise [Unknown]
  - Discomfort [Unknown]
  - Drug intolerance [Unknown]
